FAERS Safety Report 6017512-X (Version None)
Quarter: 2008Q4

REPORT INFORMATION
  Report Type: 
  Country: None (occurrence: None)
  Receive Date: 20081223
  Receipt Date: 20081028
  Transmission Date: 20090506
  Serious: No
  Sender: FDA-Public Use
  Company Number: US-BRISTOL-MYERS SQUIBB COMPANY-14386270

PATIENT
  Age: 35 Year
  Sex: Male

DRUGS (4)
  1. CARDIOLITE INJ [Suspect]
     Indication: CARDIAC PHARMACOLOGIC STRESS TEST
  2. ASPIRIN [Concomitant]
  3. SIMVASTATIN [Concomitant]
  4. TYLENOL (CAPLET) [Concomitant]

REACTIONS (2)
  - BLOOD PRESSURE DECREASED [None]
  - MALAISE [None]
